FAERS Safety Report 7207275-4 (Version None)
Quarter: 2011Q1

REPORT INFORMATION
  Report Type: 
  Country: None (occurrence: None)
  Receive Date: 20110103
  Receipt Date: 20101230
  Transmission Date: 20110831
  Serious: Yes (Other)
  Sender: FDA-Public Use
  Company Number: BE-BRISTOL-MYERS SQUIBB COMPANY-15468234

PATIENT
  Age: 77 Year

DRUGS (1)
  1. TRIAMCINOLONE ACETONIDE [Suspect]
     Dosage: INTRAVITREAL INJ
     Route: 031

REACTIONS (1)
  - CYTOMEGALOVIRUS CHORIORETINITIS [None]
